FAERS Safety Report 20884427 (Version 4)
Quarter: 2022Q4

REPORT INFORMATION
  Report Type: Spontaneous
  Country: US (occurrence: US)
  Receive Date: 20220527
  Receipt Date: 20221219
  Transmission Date: 20230112
  Serious: Yes (Hospitalization)
  Sender: FDA-Public Use
  Company Number: US-PFIZER INC-2020109060

PATIENT
  Age: 65 Year
  Sex: Female
  Weight: 122.4 kg

DRUGS (1)
  1. PROCARDIA XL [Suspect]
     Active Substance: NIFEDIPINE
     Indication: Hypertension
     Dosage: 90 MG, 2X/DAY (TAKE 1 TABLET (90 MG) BY MOUTH 2 TIMES A DAY)
     Route: 048

REACTIONS (3)
  - Illness [Unknown]
  - Off label use [Unknown]
  - Memory impairment [Unknown]

NARRATIVE: CASE EVENT DATE: 20201230
